FAERS Safety Report 5208865-0 (Version None)
Quarter: 2007Q1

REPORT INFORMATION
  Report Type: 
  Country: None (occurrence: None)
  Receive Date: 20070116
  Receipt Date: 20070108
  Transmission Date: 20070707
  Serious: Yes (Hospitalization)
  Sender: FDA-Public Use
  Company Number: FR-BRISTOL-MYERS SQUIBB COMPANY-13640776

PATIENT
  Age: 15 Year
  Sex: Male

DRUGS (3)
  1. HOLOXAN [Suspect]
     Indication: CNS GERMINOMA
     Route: 042
     Dates: start: 20061005, end: 20061010
  2. ETOPOSIDE [Suspect]
     Indication: CNS GERMINOMA
     Route: 042
     Dates: start: 20061005, end: 20061010
  3. DEXAMETHASONE [Suspect]
     Indication: CNS GERMINOMA
     Route: 042
     Dates: start: 20061005, end: 20061009

REACTIONS (1)
  - MANIA [None]
